FAERS Safety Report 11694925 (Version 1)
Quarter: 2015Q4

REPORT INFORMATION
  Report Type: Spontaneous
  Country: AR (occurrence: AR)
  Receive Date: 20151103
  Receipt Date: 20151103
  Transmission Date: 20160304
  Serious: Yes (Other)
  Sender: FDA-Public Use
  Company Number: PHHY2015AR138240

PATIENT
  Age: 82 Year
  Sex: Female

DRUGS (2)
  1. VALPROIC ACID. [Interacting]
     Active Substance: VALPROIC ACID
     Indication: STATUS EPILEPTICUS
     Dosage: 1500 MG, QD
     Route: 065
  2. MEROPENEM. [Suspect]
     Active Substance: MEROPENEM
     Indication: URINARY TRACT INFECTION
     Route: 065

REACTIONS (2)
  - Drug interaction [Unknown]
  - Status epilepticus [Recovering/Resolving]
